FAERS Safety Report 16254826 (Version 1)
Quarter: 2019Q2

REPORT INFORMATION
  Report Type: Spontaneous
  Country: IN (occurrence: IN)
  Receive Date: 20190430
  Receipt Date: 20190430
  Transmission Date: 20190711
  Serious: Yes (Other)
  Sender: FDA-Public Use
  Company Number: PHHY2019IN098107

PATIENT

DRUGS (2)
  1. TERBINAFINE. [Suspect]
     Active Substance: TERBINAFINE
     Indication: DERMATOPHYTOSIS OF NAIL
  2. TERBINAFINE. [Suspect]
     Active Substance: TERBINAFINE
     Indication: TINEA INFECTION
     Dosage: VARIABLY PRESCRIBED 250 AND 500 MG/DAY
     Route: 048

REACTIONS (7)
  - Rash erythematous [Recovered/Resolved]
  - Idiosyncratic drug reaction [Recovered/Resolved]
  - Subacute cutaneous lupus erythematosus [Recovered/Resolved]
  - Lupus-like syndrome [Recovered/Resolved]
  - Rash maculo-papular [Recovered/Resolved]
  - Perivascular dermatitis [Recovered/Resolved]
  - Exfoliative rash [Recovered/Resolved]
